FAERS Safety Report 7704195-3 (Version None)
Quarter: 2011Q3

REPORT INFORMATION
  Report Type: 
  Country: None (occurrence: None)
  Receive Date: 20110823
  Receipt Date: 20110810
  Transmission Date: 20111222
  Serious: Yes (Death, Hospitalization)
  Sender: FDA-Public Use
  Company Number: US-ACTELION-A-NJ2011-52049

PATIENT

DRUGS (5)
  1. TRACLEER [Suspect]
     Indication: PULMONARY ARTERIAL HYPERTENSION
     Dosage: UNK
     Route: 048
     Dates: start: 20070214
  2. PLAVIX [Concomitant]
  3. CALCIUM CHANNEL BLOCKERS [Concomitant]
  4. REVATIO [Concomitant]
  5. PREDNISONE TAB [Concomitant]

REACTIONS (5)
  - DEATH [None]
  - OXYGEN SATURATION DECREASED [None]
  - DYSPNOEA [None]
  - MALAISE [None]
  - CARDIAC FAILURE CONGESTIVE [None]
